FAERS Safety Report 5801338-3 (Version None)
Quarter: 2008Q3

REPORT INFORMATION
  Report Type: 
  Country: None (occurrence: None)
  Receive Date: 20080703
  Receipt Date: 20080703
  Transmission Date: 20090109
  Serious: Yes (Life-Threatening, Hospitalization)
  Sender: FDA-Public Use
  Company Number: None

PATIENT
  Age: 55 Year
  Sex: Female
  Weight: 82 kg

DRUGS (1)
  1. BEVACIZUMAB 10MG/KG (GENENTECH) [Suspect]
     Indication: BREAST CANCER METASTATIC
     Dosage: 10MG/KG (830MG) EVERY 14 DAY IV
     Route: 042
     Dates: start: 20080122, end: 20080221

REACTIONS (2)
  - CARDIOMYOPATHY [None]
  - MYOCARDIAL INFARCTION [None]
